FAERS Safety Report 7832935-1 (Version None)
Quarter: 2011Q4

REPORT INFORMATION
  Report Type: 
  Country: None (occurrence: None)
  Receive Date: 20111019
  Receipt Date: 20111004
  Transmission Date: 20120403
  Serious: Yes (Disabling)
  Sender: FDA-Public Use
  Company Number: 2011P1008975

PATIENT
  Sex: Female

DRUGS (4)
  1. CLOTRIMAZOLE [Suspect]
     Indication: FUNGAL SKIN INFECTION
     Dosage: ; QD,TOP
     Route: 061
     Dates: start: 20010101
  2. FISH OIL [Concomitant]
  3. CLOTRIMAZOLE [Suspect]
     Dosage: ;QD; TOP
     Route: 061
     Dates: start: 20110101, end: 20110919
  4. VITAMIN TAB [Concomitant]

REACTIONS (8)
  - NEURALGIA [None]
  - IMPATIENCE [None]
  - CONDITION AGGRAVATED [None]
  - INSOMNIA [None]
  - FUNGAL SKIN INFECTION [None]
  - APPLICATION SITE DISCHARGE [None]
  - APPLICATION SITE DISCOLOURATION [None]
  - BLOOD PRESSURE INCREASED [None]
